FAERS Safety Report 24721987 (Version 1)
Quarter: 2024Q4

REPORT INFORMATION
  Report Type: Spontaneous
  Country: US (occurrence: US)
  Receive Date: 20241211
  Receipt Date: 20241211
  Transmission Date: 20250114
  Serious: No
  Sender: CSL BEHRING
  Company Number: US-BEH-2024187037

PATIENT
  Age: 43 Year

DRUGS (1)
  1. HIZENTRA [Suspect]
     Active Substance: HUMAN IMMUNOGLOBULIN G
     Indication: Product used for unknown indication
     Dosage: UNK
     Route: 065
     Dates: start: 20241202

REACTIONS (1)
  - Full blood count abnormal [Unknown]

NARRATIVE: CASE EVENT DATE: 20241205
